FAERS Safety Report 5757839-X (Version None)
Quarter: 2008Q2

REPORT INFORMATION
  Report Type: 
  Country: None (occurrence: None)
  Receive Date: 20080603
  Receipt Date: 20080526
  Transmission Date: 20081010
  Serious: Yes (Hospitalization)
  Sender: FDA-Public Use
  Company Number: PHHY2008IT09041

PATIENT

DRUGS (1)
  1. DICLOFENAC SODIUM [Suspect]

REACTIONS (4)
  - GENERALISED ERYTHEMA [None]
  - HYPERHIDROSIS [None]
  - PALLOR [None]
  - PRURITUS GENERALISED [None]
